FAERS Safety Report 12970720 (Version 6)
Quarter: 2017Q3

REPORT INFORMATION
  Report Type: Report from Study
  Country: US (occurrence: US)
  Receive Date: 20161123
  Receipt Date: 20170821
  Transmission Date: 20171127
  Serious: Yes (Hospitalization, Other)
  Sender: FDA-Public Use
  Company Number: US-ACTELION-A-US2015-122713

PATIENT
  Age: 59 Year
  Sex: Female
  Weight: 82.99 kg

DRUGS (14)
  1. OXYGEN. [Concomitant]
     Active Substance: OXYGEN
  2. AMLODIPINE [Concomitant]
     Active Substance: AMLODIPINE BESYLATE
  3. OPSUMIT [Suspect]
     Active Substance: MACITENTAN
     Indication: PULMONARY ARTERIAL HYPERTENSION
     Dosage: 10 MG, QD
     Route: 048
     Dates: start: 20141122
  4. TREPROSTINIL DIOLAMIN [Suspect]
     Active Substance: TREPROSTINIL DIOLAMINE
     Indication: PRODUCT USED FOR UNKNOWN INDICATION
     Dosage: UNK
     Route: 065
  5. COMBIVENT RESPIMAT [Concomitant]
     Active Substance: ALBUTEROL SULFATE\IPRATROPIUM BROMIDE
     Dosage: UNK
     Dates: start: 20130411
  6. TYVASO [Concomitant]
     Active Substance: TREPROSTINIL
  7. BREO ELLIPTA [Concomitant]
     Active Substance: FLUTICASONE FUROATE\VILANTEROL TRIFENATATE
     Dosage: UNK
     Dates: start: 20160425
  8. DELTASONE [Concomitant]
     Active Substance: PREDNISONE
     Dosage: UNK
     Dates: start: 20160302
  9. SPIRIVA [Concomitant]
     Active Substance: TIOTROPIUM BROMIDE MONOHYDRATE
     Dosage: UNK
     Dates: start: 20151130
  10. OPSUMIT [Suspect]
     Active Substance: MACITENTAN
     Dosage: UNK
     Route: 048
  11. PROVENTIL [Concomitant]
     Active Substance: ALBUTEROL
     Dosage: UNK
     Dates: start: 20151130
  12. LASIX [Concomitant]
     Active Substance: FUROSEMIDE
     Dosage: UNK
     Dates: start: 20120430
  13. DALIRESP [Concomitant]
     Active Substance: ROFLUMILAST
     Dosage: UNK
     Dates: start: 20140708
  14. ATROVENT [Concomitant]
     Active Substance: IPRATROPIUM BROMIDE
     Dosage: UNK
     Dates: start: 20151130

REACTIONS (39)
  - Respiratory fume inhalation disorder [Unknown]
  - Bronchitis [Unknown]
  - Blister [Unknown]
  - Migraine [Unknown]
  - Rhinorrhoea [Unknown]
  - Headache [Unknown]
  - Hypoxia [Recovered/Resolved]
  - Dyspnoea [Unknown]
  - Pulmonary arterial hypertension [Unknown]
  - Condition aggravated [Unknown]
  - Malaise [Unknown]
  - Tinnitus [Unknown]
  - Balance disorder [Unknown]
  - Chest pain [Unknown]
  - Skin exfoliation [Unknown]
  - Chronic obstructive pulmonary disease [Recovered/Resolved]
  - Hypercapnia [Recovered/Resolved]
  - Bronchoscopy [Recovered/Resolved]
  - Dizziness [Unknown]
  - Myocardial infarction [Unknown]
  - Excessive cerumen production [Unknown]
  - Discomfort [Unknown]
  - Pruritus [Unknown]
  - Oxygen consumption increased [Recovered/Resolved]
  - Pollakiuria [Unknown]
  - Memory impairment [Unknown]
  - Anxiety [Unknown]
  - Sinus disorder [Unknown]
  - Acute respiratory failure [Recovered/Resolved]
  - Palpitations [Unknown]
  - Anal incontinence [Unknown]
  - Choking [Unknown]
  - Crying [Unknown]
  - Asthenia [Unknown]
  - Social stay hospitalisation [Recovered/Resolved]
  - Depression [Unknown]
  - Unevaluable event [Unknown]
  - Oxygen therapy [Unknown]
  - Dyspnoea exertional [Unknown]

NARRATIVE: CASE EVENT DATE: 20150725
